FAERS Safety Report 21149802 (Version 1)
Quarter: 2022Q3

REPORT INFORMATION
  Report Type: Spontaneous
  Country: CN (occurrence: CN)
  Receive Date: 20220729
  Receipt Date: 20220729
  Transmission Date: 20221026
  Serious: Yes (Other)
  Sender: FDA-Public Use
  Company Number: None

PATIENT
  Age: 36 Year
  Sex: Female
  Weight: 51 kg

DRUGS (2)
  1. MANNITOL [Suspect]
     Active Substance: MANNITOL
     Indication: Diuretic therapy
     Dosage: 250 ML ONCE DAILY
     Route: 041
     Dates: start: 20220721, end: 20220721
  2. MANNITOL [Suspect]
     Active Substance: MANNITOL
     Indication: Swelling

REACTIONS (2)
  - Discomfort [Recovering/Resolving]
  - Chills [Recovering/Resolving]

NARRATIVE: CASE EVENT DATE: 20220721
